FAERS Safety Report 13901923 (Version 1)
Quarter: 2017Q3

REPORT INFORMATION
  Report Type: Spontaneous
  Country: US (occurrence: US)
  Receive Date: 20170824
  Receipt Date: 20170824
  Transmission Date: 20171127
  Serious: Yes (Other)
  Sender: FDA-Public Use
  Company Number: PHEH2017US026679

PATIENT
  Sex: Male

DRUGS (1)
  1. TASIGNA [Suspect]
     Active Substance: NILOTINIB
     Indication: CHRONIC MYELOID LEUKAEMIA
     Route: 065

REACTIONS (4)
  - Blast crisis in myelogenous leukaemia [Unknown]
  - Blood count abnormal [Unknown]
  - Metastases to meninges [Unknown]
  - Acute lymphocytic leukaemia [Unknown]
